FAERS Safety Report 16556530 (Version 1)
Quarter: 2019Q3

REPORT INFORMATION
  Report Type: Spontaneous
  Country: US (occurrence: US)
  Receive Date: 20190529
  Receipt Date: 20190529
  Transmission Date: 20191004
  Serious: No
  Sender: FDA-Public Use
  Company Number: None

PATIENT
  Sex: Male

DRUGS (1)
  1. REPATHA [Suspect]
     Active Substance: EVOLOCUMAB
     Indication: MYOPATHY
     Route: 058
     Dates: start: 20190327, end: 20190522

REACTIONS (2)
  - Blood cholesterol increased [None]
  - Rash [None]
